FAERS Safety Report 20864123 (Version 1)
Quarter: 2022Q2

REPORT INFORMATION
  Report Type: Report from Study
  Country: RU (occurrence: RU)
  Receive Date: 20220523
  Receipt Date: 20220523
  Transmission Date: 20220721
  Serious: Yes (Hospitalization, Other)
  Sender: FDA-Public Use
  Company Number: RU-BRISTOL-MYERS SQUIBB COMPANY-2022-018103

PATIENT
  Age: 62 Year
  Sex: Male
  Weight: 69 kg

DRUGS (5)
  1. CARBOPLATIN [Suspect]
     Active Substance: CARBOPLATIN
     Indication: Non-small cell lung cancer
     Dosage: MOST RECENT DOSE ON 06-DEC-2021 AT A DOSE OF 596 MG
     Route: 042
     Dates: start: 20211005
  2. PACLITAXEL [Suspect]
     Active Substance: PACLITAXEL
     Indication: Non-small cell lung cancer
     Dosage: MOST RECENT DOSE ON 06-DEC-2021
     Route: 042
     Dates: start: 20211005
  3. BISOPROLOL [Concomitant]
     Active Substance: BISOPROLOL
     Indication: Product used for unknown indication
     Dosage: ONGOING
     Route: 048
     Dates: start: 2017
  4. ENALAPRIL [Concomitant]
     Active Substance: ENALAPRIL
     Indication: Product used for unknown indication
     Dosage: ONGOING
     Route: 048
     Dates: start: 2020
  5. OMEPRAZOLE [Concomitant]
     Active Substance: OMEPRAZOLE
     Indication: Product used for unknown indication
     Dosage: ONGOING
     Route: 048
     Dates: start: 2021

REACTIONS (1)
  - Colitis ulcerative [Recovered/Resolved]

NARRATIVE: CASE EVENT DATE: 20220125
